FAERS Safety Report 7800231-4 (Version None)
Quarter: 2011Q4

REPORT INFORMATION
  Report Type: 
  Country: None (occurrence: None)
  Receive Date: 20111006
  Receipt Date: 20110928
  Transmission Date: 20120403
  Serious: Yes (Hospitalization, Other)
  Sender: FDA-Public Use
  Company Number: US-GLAXOSMITHKLINE-A0884147A

PATIENT
  Age: 87 Year
  Sex: Male

DRUGS (34)
  1. KETOROLAC TROMETHAMINE [Concomitant]
     Dosage: 1DROP TWICE PER DAY
     Route: 047
  2. ZYMAR [Concomitant]
     Dosage: 1DROP FOUR TIMES PER DAY
     Route: 047
  3. ATROVENT [Concomitant]
  4. ASPIRIN [Concomitant]
  5. HYDRALAZINE HCL [Concomitant]
  6. COLCHICINE [Concomitant]
  7. ATENOLOL [Concomitant]
     Dosage: 100MG PER DAY
     Route: 048
  8. LASIX [Concomitant]
     Dosage: 40MG PER DAY
     Route: 048
  9. PRED FORTE [Concomitant]
     Dosage: 1DROP FOUR TIMES PER DAY
     Route: 047
  10. ALLOPURINOL [Concomitant]
  11. CLOPIDOGREL [Concomitant]
  12. HEPARIN [Suspect]
     Indication: PRODUCT USED FOR UNKNOWN INDICATION
  13. DEXAMETHASONE [Concomitant]
     Dosage: 40MG PER DAY
     Route: 048
  14. DOXAZOSIN MESYLATE [Concomitant]
     Dosage: 8MG PER DAY
     Route: 048
  15. IMDUR [Concomitant]
     Dosage: 60MG PER DAY
     Route: 048
  16. NORVASC [Concomitant]
     Dosage: 10MG PER DAY
     Route: 048
  17. FINASTERIDE [Concomitant]
  18. PROMACTA [Suspect]
     Indication: IDIOPATHIC THROMBOCYTOPENIC PURPURA
     Dosage: 50MG PER DAY
     Route: 048
     Dates: start: 20100630
  19. COUMADIN [Concomitant]
  20. TORSEMIDE [Concomitant]
  21. OMEPRAZOLE/SODIUM BICARBONATE [Concomitant]
  22. EPOGEN [Concomitant]
  23. LACTINEX [Concomitant]
  24. TAMSULOSIN HCL [Concomitant]
  25. OXYGEN [Concomitant]
  26. VYTORIN [Concomitant]
     Dosage: 1TAB PER DAY
     Route: 048
  27. PREDNISONE [Concomitant]
  28. FLOMAX [Concomitant]
  29. AMLODIPINE [Concomitant]
  30. SIMVASTATIN [Concomitant]
  31. CATAPRES [Concomitant]
     Dosage: .3MGD WEEKLY
     Route: 062
  32. LISINOPRIL [Concomitant]
     Dosage: 20MG PER DAY
     Route: 048
  33. METOPROLOL TARTRATE [Concomitant]
  34. ISORDIL [Concomitant]

REACTIONS (18)
  - ALANINE AMINOTRANSFERASE INCREASED [None]
  - HEPARIN-INDUCED THROMBOCYTOPENIA TEST POSITIVE [None]
  - HAEMATOCRIT DECREASED [None]
  - PROSTATIC PAIN [None]
  - DYSPNOEA [None]
  - PLATELET COUNT DECREASED [None]
  - SPUTUM DISCOLOURED [None]
  - ORTHOPNOEA [None]
  - ASPARTATE AMINOTRANSFERASE INCREASED [None]
  - BRONCHITIS [None]
  - CHRONIC OBSTRUCTIVE PULMONARY DISEASE [None]
  - OEDEMA [None]
  - PYREXIA [None]
  - CARDIAC FAILURE CONGESTIVE [None]
  - HYPOXIA [None]
  - OXYGEN SATURATION DECREASED [None]
  - OCCULT BLOOD POSITIVE [None]
  - HAEMOPTYSIS [None]
